FAERS Safety Report 17810807 (Version 1)
Quarter: 2020Q2

REPORT INFORMATION
  Report Type: Spontaneous
  Country: US (occurrence: US)
  Receive Date: 20200521
  Receipt Date: 20200521
  Transmission Date: 20200714
  Serious: No
  Sender: FDA-Public Use
  Company Number: US-ACCORD-155438

PATIENT
  Sex: Male
  Weight: 79.38 kg

DRUGS (2)
  1. AMANTADINE. [Concomitant]
     Active Substance: AMANTADINE HYDROCHLORIDE
  2. QUETIAPINE ACCORD [Suspect]
     Active Substance: QUETIAPINE
     Indication: INSOMNIA
     Dosage: STRENGTH: 25 MG
     Route: 060
     Dates: start: 2018

REACTIONS (3)
  - Product use issue [Unknown]
  - Product physical issue [Unknown]
  - Off label use [Unknown]
